FAERS Safety Report 16532894 (Version 1)
Quarter: 2019Q3

REPORT INFORMATION
  Report Type: Spontaneous
  Country: CH (occurrence: CH)
  Receive Date: 20190705
  Receipt Date: 20190705
  Transmission Date: 20191004
  Serious: Yes (Other)
  Sender: FDA-Public Use
  Company Number: CH-ASTRAZENECA-2019SE96856

PATIENT
  Age: 74 Year
  Sex: Female

DRUGS (23)
  1. CIPROFLOXACIN. [Suspect]
     Active Substance: CIPROFLOXACIN
     Indication: PRODUCT USED FOR UNKNOWN INDICATION
     Route: 048
     Dates: start: 20190607, end: 20190612
  2. CIPROFLOXACIN. [Suspect]
     Active Substance: CIPROFLOXACIN
     Indication: PRODUCT USED FOR UNKNOWN INDICATION
     Route: 048
     Dates: start: 20190612, end: 20190613
  3. LAXOBERON [Concomitant]
     Active Substance: SODIUM PICOSULFATE
     Dates: start: 20190605
  4. PASPERTIN [Concomitant]
     Dates: start: 20190613
  5. HEPARIN [Suspect]
     Active Substance: HEPARIN SODIUM
     Route: 058
     Dates: start: 20190603, end: 20190604
  6. MELATONIN [Concomitant]
     Active Substance: MELATONIN
     Dates: start: 20190604
  7. SORBITOL. [Concomitant]
     Active Substance: SORBITOL
     Dates: start: 20190603
  8. XARELTO [Concomitant]
     Active Substance: RIVAROXABAN
     Dates: start: 20190613
  9. BELOC ZOK [Suspect]
     Active Substance: METOPROLOL SUCCINATE
     Indication: PRODUCT USED FOR UNKNOWN INDICATION
     Route: 048
     Dates: end: 20190611
  10. DAFALGAN [Concomitant]
     Active Substance: ACETAMINOPHEN
     Dates: start: 20190603, end: 20190614
  11. BENERVA [Concomitant]
     Active Substance: THIAMINE HYDROCHLORIDE
     Dates: start: 20190603
  12. CORDARONE [Suspect]
     Active Substance: AMIODARONE HYDROCHLORIDE
     Indication: PRODUCT USED FOR UNKNOWN INDICATION
     Route: 048
     Dates: start: 20190606, end: 20190616
  13. EUTHYROX [Concomitant]
     Active Substance: LEVOTHYROXINE SODIUM
     Dates: start: 20190605
  14. XARELTO [Concomitant]
     Active Substance: RIVAROXABAN
     Dates: end: 20190604
  15. CRESTOR [Suspect]
     Active Substance: ROSUVASTATIN CALCIUM
     Route: 048
  16. OGASTORO [Suspect]
     Active Substance: LANSOPRAZOLE
     Route: 048
  17. OGASTORO [Suspect]
     Active Substance: LANSOPRAZOLE
     Dosage: 15MG SISTEMATICALLY
     Route: 048
     Dates: start: 20190605, end: 20190614
  18. BECOZYME [Concomitant]
     Active Substance: VITAMINS
     Dates: start: 20190603
  19. CORDARONE [Suspect]
     Active Substance: AMIODARONE HYDROCHLORIDE
     Indication: PRODUCT USED FOR UNKNOWN INDICATION
     Route: 048
     Dates: end: 20190403
  20. CLEXANE [Suspect]
     Active Substance: ENOXAPARIN SODIUM
     Route: 058
     Dates: start: 20190605, end: 20190609
  21. CLEXANE [Suspect]
     Active Substance: ENOXAPARIN SODIUM
     Route: 048
     Dates: start: 20190609, end: 20190612
  22. ANXIOLIT [Concomitant]
     Active Substance: OXAZEPAM
     Dates: start: 20190605
  23. ATROVENT [Concomitant]
     Active Substance: IPRATROPIUM BROMIDE
     Dates: start: 20190605

REACTIONS (2)
  - Cholestatic liver injury [Not Recovered/Not Resolved]
  - Blood creatine increased [Not Recovered/Not Resolved]

NARRATIVE: CASE EVENT DATE: 20190604
